FAERS Safety Report 5169886-X (Version None)
Quarter: 2006Q4

REPORT INFORMATION
  Report Type: 
  Country: None (occurrence: None)
  Receive Date: 20061212
  Receipt Date: 20061004
  Transmission Date: 20070319
  Serious: Yes (Other)
  Sender: FDA-Public Use
  Company Number: US-AVENTIS-200618380US

PATIENT
  Age: 40 Year
  Sex: Male

DRUGS (3)
  1. TAXOTERE [Suspect]
     Dosage: DOSE: UNK
  2. GEMZAR                             /01215701/ [Suspect]
     Dosage: DOSE: UNK
  3. CISPLATIN [Concomitant]
     Dosage: DOSE: UNK

REACTIONS (5)
  - BLOOD CREATININE INCREASED [None]
  - BLOOD URINE PRESENT [None]
  - PROTEIN URINE PRESENT [None]
  - RENAL FAILURE [None]
  - RENAL TUBULAR NECROSIS [None]
